FAERS Safety Report 5192014-1 (Version None)
Quarter: 2006Q4

REPORT INFORMATION
  Report Type: 
  Country: None (occurrence: None)
  Receive Date: 20061220
  Receipt Date: 20061220
  Transmission Date: 20070319
  Serious: Yes (Hospitalization)
  Sender: FDA-Public Use
  Company Number: None

PATIENT
  Age: 46 Year
  Sex: Female
  Weight: 95 kg

DRUGS (8)
  1. WARFARIN SODIUM [Suspect]
     Indication: ANTIPHOSPHOLIPID ANTIBODIES
     Dosage: 5MG PO QHS   CHRONIC
     Route: 048
  2. IBUPROFEN [Suspect]
     Indication: PAIN
     Dosage: 200MG ONE PO BID PRN  RECENT
     Route: 048
  3. PHENERGAN [Concomitant]
  4. DAPSONE [Concomitant]
  5. COUMADIN [Concomitant]
  6. HYDROCHLOROTHIAZIDE [Concomitant]
  7. MOTRIN [Concomitant]
  8. INHALERS [Concomitant]

REACTIONS (7)
  - ANAEMIA [None]
  - EROSIVE OESOPHAGITIS [None]
  - GASTROINTESTINAL HAEMORRHAGE [None]
  - INTERNATIONAL NORMALISED RATIO INCREASED [None]
  - OESOPHAGEAL ULCER [None]
  - OESOPHAGITIS HAEMORRHAGIC [None]
  - SHOCK HAEMORRHAGIC [None]
